FAERS Safety Report 15060969 (Version 1)
Quarter: 2018Q2

REPORT INFORMATION
  Report Type: Spontaneous
  Country: US (occurrence: US)
  Receive Date: 20180625
  Receipt Date: 20180625
  Transmission Date: 20180711
  Serious: No
  Sender: FDA-Public Use
  Company Number: US-ROCHE-2088321

PATIENT
  Sex: Female
  Weight: 70.37 kg

DRUGS (1)
  1. KLONOPIN [Suspect]
     Active Substance: CLONAZEPAM
     Indication: PRODUCT USED FOR UNKNOWN INDICATION
     Dosage: ONGOING: UNKNOWN
     Route: 065

REACTIONS (4)
  - Dyspnoea [Unknown]
  - Paraesthesia [Unknown]
  - Hypoaesthesia [Unknown]
  - Hypersensitivity [Unknown]
